FAERS Safety Report 5378509-6 (Version None)
Quarter: 2007Q3

REPORT INFORMATION
  Report Type: 
  Country: None (occurrence: None)
  Receive Date: 20070705
  Receipt Date: 20070629
  Transmission Date: 20080115
  Serious: Yes (Other)
  Sender: FDA-Public Use
  Company Number: CA-BAYER-200711021GDS

PATIENT
  Age: 60 Year
  Sex: Male

DRUGS (1)
  1. CIPRO XR [Suspect]
     Indication: PROSTATITIS
     Dosage: UNIT DOSE: 1000 MG
     Route: 048

REACTIONS (4)
  - ECCHYMOSIS [None]
  - OEDEMA PERIPHERAL [None]
  - PAIN [None]
  - SKIN DISCOLOURATION [None]
